FAERS Safety Report 14894904 (Version 1)
Quarter: 2018Q2

REPORT INFORMATION
  Report Type: Spontaneous
  Country: FR (occurrence: FR)
  Receive Date: 20180515
  Receipt Date: 20180515
  Transmission Date: 20180711
  Serious: Yes (Hospitalization)
  Sender: FDA-Public Use
  Company Number: FR-009507513-1805FRA003468

PATIENT
  Age: 52 Year
  Sex: Female
  Weight: 61 kg

DRUGS (8)
  1. PRIMPERAN [Concomitant]
     Active Substance: METOCLOPRAMIDE HYDROCHLORIDE
     Dosage: 10 MG, UNK
     Route: 048
  2. KEYTRUDA [Suspect]
     Active Substance: PEMBROLIZUMAB
     Indication: LUNG ADENOCARCINOMA STAGE IV
     Dosage: 130 MG, Q3W
     Route: 041
     Dates: start: 20180102, end: 20180123
  3. PROFENID [Suspect]
     Active Substance: KETOPROFEN
     Indication: LUNG ADENOCARCINOMA STAGE IV
     Dosage: 200 MG, QD
     Route: 048
     Dates: start: 20180104, end: 20180124
  4. PANTOPRAZOLE [Concomitant]
     Active Substance: PANTOPRAZOLE
     Dosage: 40 MG, QD
     Route: 048
  5. ACETAMINOPHEN. [Concomitant]
     Active Substance: ACETAMINOPHEN
     Dosage: UNK
     Route: 048
  6. FORLAX [Concomitant]
     Active Substance: POLYETHYLENE GLYCOL 4000
     Dosage: 1 DF, UNK
     Route: 048
  7. FENTANYL. [Concomitant]
     Active Substance: FENTANYL
     Dosage: 25 MICROGRAM, Q3D
     Route: 062
  8. OXYCODONE [Concomitant]
     Active Substance: OXYCODONE
     Dosage: 25 MG, QD
     Route: 048

REACTIONS (1)
  - Jejunal perforation [Recovered/Resolved]

NARRATIVE: CASE EVENT DATE: 20180125
